FAERS Safety Report 5014024-7 (Version None)
Quarter: 2006Q2

REPORT INFORMATION
  Report Type: 
  Country: None (occurrence: None)
  Receive Date: 20060526
  Receipt Date: 20060526
  Transmission Date: 20061013
  Serious: Yes (Hospitalization)
  Sender: FDA-Public Use
  Company Number: None

PATIENT
  Age: 59 Year
  Sex: Male
  Weight: 88 kg

DRUGS (19)
  1. AMOXICILLIN [Suspect]
     Indication: DENTAL DISORDER PROPHYLAXIS
     Dosage: 2 GRAMS    1 HR PRIOR DENTIST    PO  (DURATION: ONCE)
     Route: 048
  2. ASCORBIC ACID [Concomitant]
  3. ASPIRIN [Concomitant]
  4. LIPITOR [Concomitant]
  5. COREG [Concomitant]
  6. CIPRO [Concomitant]
  7. LASIX [Concomitant]
  8. NEURONTIN [Concomitant]
  9. GANCICLOVIR [Concomitant]
  10. INH [Concomitant]
  11. LISINOPRIL [Concomitant]
  12. FLAGYL [Concomitant]
  13. PROCARDIA XL [Concomitant]
  14. NORMAL SALINE [Concomitant]
  15. PROTONIX [Concomitant]
  16. VITAMIN B6 SUPPLEMENT [Concomitant]
  17. COLACE [Concomitant]
  18. SEPTRA [Concomitant]
  19. PROGRAF [Concomitant]

REACTIONS (5)
  - ABDOMINAL DISCOMFORT [None]
  - ABDOMINAL PAIN [None]
  - CLOSTRIDIUM DIFFICILE COLITIS [None]
  - DIARRHOEA [None]
  - PYREXIA [None]
